FAERS Safety Report 16582634 (Version 1)
Quarter: 2019Q3

REPORT INFORMATION
  Report Type: Spontaneous
  Country: HU (occurrence: HU)
  Receive Date: 20190717
  Receipt Date: 20190717
  Transmission Date: 20191004
  Serious: Yes (Other)
  Sender: FDA-Public Use
  Company Number: HU-ACCORD-138321

PATIENT
  Age: 12 Year
  Sex: Male

DRUGS (18)
  1. ETOPOSIDE. [Suspect]
     Active Substance: ETOPOSIDE
     Indication: T-CELL TYPE ACUTE LEUKAEMIA
  2. CYTARABINE/CYTARABINE HYDROCHLORIDE/CYTARABINE OCFOSFATE [Suspect]
     Active Substance: CYTARABINE
     Indication: T-CELL TYPE ACUTE LEUKAEMIA
  3. DEXAMETHASONE. [Concomitant]
     Active Substance: DEXAMETHASONE
  4. CYCLOPHOSPHAMIDE/CYCLOPHOSPHAMIDE MONOHYDRATE [Concomitant]
  5. VINDESINE/VINDESINE SULFATE [Concomitant]
  6. IDARUBICIN [Concomitant]
     Active Substance: IDARUBICIN
  7. DAUNORUBICIN [Concomitant]
     Active Substance: DAUNORUBICIN
  8. MERCAPTOPURINE/MERCAPTOPURINE ANHYDROUS [Suspect]
     Active Substance: MERCAPTOPURINE
     Indication: T-CELL TYPE ACUTE LEUKAEMIA
  9. IFOSFAMIDE. [Concomitant]
     Active Substance: IFOSFAMIDE
  10. ASPARAGINASE [Concomitant]
     Active Substance: ASPARAGINASE
  11. METHOTREXATE. [Suspect]
     Active Substance: METHOTREXATE
     Indication: T-CELL TYPE ACUTE LEUKAEMIA
  12. PREDNISONE. [Concomitant]
     Active Substance: PREDNISONE
  13. TENIPOSIDE. [Concomitant]
     Active Substance: TENIPOSIDE
  14. VINCRISTINE [Concomitant]
     Active Substance: VINCRISTINE
  15. EPIRUBICIN [Suspect]
     Active Substance: EPIRUBICIN
     Indication: T-CELL TYPE ACUTE LEUKAEMIA
  16. DOXORUBICIN [Concomitant]
     Active Substance: DOXORUBICIN
  17. PREDNISOLONE. [Concomitant]
     Active Substance: PREDNISOLONE
  18. GRANULOCYTE COLONY STIMULATING [Concomitant]
     Active Substance: GRANULOCYTE COLONY-STIMULATING FACTOR NOS

REACTIONS (3)
  - Pancytopenia [Unknown]
  - Off label use [Unknown]
  - Infection [Unknown]
